FAERS Safety Report 5606946-0 (Version None)
Quarter: 2008Q1

REPORT INFORMATION
  Report Type: 
  Country: None (occurrence: None)
  Receive Date: 20080129
  Receipt Date: 20080116
  Transmission Date: 20080703
  Serious: Yes (Other)
  Sender: FDA-Public Use
  Company Number: US-GENENTECH-234444

PATIENT
  Sex: Female
  Weight: 68.027 kg

DRUGS (1)
  1. LUCENTIS [Suspect]
     Indication: PSEUDOXANTHOMA ELASTICUM
     Dosage: UNK, UNK
     Dates: start: 20060101

REACTIONS (2)
  - ABORTION SPONTANEOUS [None]
  - DRUG EXPOSURE DURING PREGNANCY [None]
